FAERS Safety Report 24917811 (Version 2)
Quarter: 2025Q4

REPORT INFORMATION
  Report Type: Report from Study
  Country: EU (occurrence: EU)
  Receive Date: 20250203
  Receipt Date: 20251201
  Transmission Date: 20260118
  Serious: Yes (Hospitalization, Other)
  Sender: ABBVIE
  Company Number: EU-ABBVIE-5299816

PATIENT
  Age: 60 Year
  Sex: Male
  Weight: 83 kg

DRUGS (2)
  1. SKYRIZI [Suspect]
     Active Substance: RISANKIZUMAB-RZAA
     Indication: Psoriasis
     Dosage: 75MG/ 4 WKS
     Route: 058
     Dates: start: 20210616, end: 20210927
  2. TALTZ [Concomitant]
     Active Substance: IXEKIZUMAB
     Indication: Psoriasis
     Dates: start: 20211015, end: 20211109

REACTIONS (1)
  - Jaw cyst [Recovered/Resolved]

NARRATIVE: CASE EVENT DATE: 20211201
